FAERS Safety Report 17613614 (Version 1)
Quarter: 2020Q2

REPORT INFORMATION
  Report Type: Spontaneous
  Country: BR (occurrence: BR)
  Receive Date: 20200402
  Receipt Date: 20200402
  Transmission Date: 20200713
  Serious: Yes (Other)
  Sender: FDA-Public Use
  Company Number: BR-BAYER-2020-049568

PATIENT
  Age: 31 Year
  Sex: Female

DRUGS (1)
  1. YAZ [Suspect]
     Active Substance: DROSPIRENONE\ETHINYL ESTRADIOL
     Indication: CONTRACEPTION
     Dosage: 1 DF, QD
     Route: 048
     Dates: start: 2015

REACTIONS (6)
  - Coital bleeding [None]
  - Pregnancy on oral contraceptive [None]
  - Drug ineffective [None]
  - Depression [None]
  - Haemorrhage in pregnancy [None]
  - Crying [None]

NARRATIVE: CASE EVENT DATE: 202001
